FAERS Safety Report 25194424 (Version 2)
Quarter: 2025Q2

REPORT INFORMATION
  Report Type: Spontaneous
  Country: PL (occurrence: PL)
  Receive Date: 20250414
  Receipt Date: 20250603
  Transmission Date: 20250716
  Serious: Yes (Other)
  Sender: DAIICHI
  Company Number: PL-ASTRAZENECA-202504EEA001846PL

PATIENT
  Age: 48 Year
  Sex: Female

DRUGS (1)
  1. TRASTUZUMAB DERUXTECAN [Suspect]
     Active Substance: TRASTUZUMAB DERUXTECAN
     Indication: HER2 positive breast cancer
     Route: 065
     Dates: start: 202311

REACTIONS (8)
  - Breast cancer [Unknown]
  - Nausea [Unknown]
  - Vomiting [Unknown]
  - Hepatic lesion [Unknown]
  - Central nervous system lesion [Unknown]
  - Skin lesion [Unknown]
  - Disease progression [Unknown]
  - Neoplasm progression [Unknown]

NARRATIVE: CASE EVENT DATE: 20190101
